FAERS Safety Report 14119986 (Version 1)
Quarter: 2017Q4

REPORT INFORMATION
  Report Type: Spontaneous
  Country: PT (occurrence: PT)
  Receive Date: 20171024
  Receipt Date: 20171024
  Transmission Date: 20180321
  Serious: Yes (Hospitalization, Other)
  Sender: FDA-Public Use
  Company Number: PT-ACCORD-060144

PATIENT
  Age: 49 Year
  Sex: Male
  Weight: 62 kg

DRUGS (7)
  1. DOCETAXEL AUROVITAS [Suspect]
     Active Substance: DOCETAXEL
     Indication: GASTRIC CANCER STAGE 0
     Route: 040
     Dates: start: 20170810
  2. PANTOPRAZOLE [Concomitant]
     Active Substance: PANTOPRAZOLE
     Route: 048
  3. FOLINIC ACID [Concomitant]
     Active Substance: LEUCOVORIN
     Indication: GASTRIC CANCER STAGE 0
     Route: 042
  4. ACETYLSALICYLIC ACID [Concomitant]
     Active Substance: ASPIRIN
     Route: 048
  5. ROSUVASTATIN. [Concomitant]
     Active Substance: ROSUVASTATIN
     Dosage: STRENGTH: 10 MG
     Route: 048
  6. OXALIPLATIN ACCORD [Suspect]
     Active Substance: OXALIPLATIN
     Indication: GASTRIC CANCER STAGE 0
     Route: 040
     Dates: start: 20170810
  7. FLUOROURACIL. [Concomitant]
     Active Substance: FLUOROURACIL
     Indication: GASTRIC CANCER STAGE 0
     Route: 042

REACTIONS (7)
  - Off label use [Unknown]
  - Neck pain [Recovered/Resolved]
  - Laryngeal discomfort [Recovered/Resolved]
  - Tongue disorder [Recovered/Resolved]
  - Device dislocation [Recovered/Resolved]
  - Dysarthria [Recovered/Resolved]
  - Neuropathy peripheral [Recovered/Resolved]

NARRATIVE: CASE EVENT DATE: 20170921
